FAERS Safety Report 8297422-8 (Version None)
Quarter: 2012Q2

REPORT INFORMATION
  Report Type: 
  Country: None (occurrence: None)
  Receive Date: 20120419
  Receipt Date: 20120416
  Transmission Date: 20120825
  Serious: Yes (Other)
  Sender: FDA-Public Use
  Company Number: US-PFIZER INC-2012095390

PATIENT
  Sex: Female
  Weight: 130 kg

DRUGS (2)
  1. LYRICA [Suspect]
     Indication: RHEUMATOID ARTHRITIS
  2. LYRICA [Suspect]
     Indication: FIBROMYALGIA
     Dosage: 150 MG, 4X/DAY
     Route: 048

REACTIONS (2)
  - HYPERTENSION [None]
  - HEAT STROKE [None]
